FAERS Safety Report 16130597 (Version 5)
Quarter: 2019Q4

REPORT INFORMATION
  Report Type: Report from Study
  Country: DE (occurrence: DE)
  Receive Date: 20190328
  Receipt Date: 20191203
  Transmission Date: 20200122
  Serious: Yes (Hospitalization, Other)
  Sender: FDA-Public Use
  Company Number: DE-BRISTOL-MYERS SQUIBB COMPANY-BMS-2018-072374

PATIENT
  Age: 56 Year
  Sex: Female
  Weight: 74 kg

DRUGS (14)
  1. METAMIZOL ARISTO [METAMIZOLE SODIUM] [Concomitant]
     Indication: PRODUCT USED FOR UNKNOWN INDICATION
     Dosage: 1500 MILLIGRAM
     Route: 048
     Dates: start: 20190711
  2. CLEXANE [Concomitant]
     Active Substance: ENOXAPARIN SODIUM
     Indication: PRODUCT USED FOR UNKNOWN INDICATION
     Dosage: 40 MILLIGRAM
     Route: 065
     Dates: start: 20190711, end: 20190723
  3. NIVOLUMAB [Suspect]
     Active Substance: NIVOLUMAB
     Indication: PRODUCT USED FOR UNKNOWN INDICATION
     Dosage: 1 DF, Q2WK
     Route: 065
     Dates: start: 20180809, end: 20181019
  4. VITAMIN B12 [Concomitant]
     Active Substance: CYANOCOBALAMIN
     Indication: PRODUCT USED FOR UNKNOWN INDICATION
     Dosage: 1 MILLIGRAM
     Route: 030
     Dates: start: 20190723
  5. PANTOZOL [Concomitant]
     Active Substance: PANTOPRAZOLE SODIUM
     Indication: PRODUCT USED FOR UNKNOWN INDICATION
     Dosage: 120 MILLIGRAM, QD
     Route: 048
     Dates: start: 20181030
  6. INSULIN [Concomitant]
     Active Substance: INSULIN NOS
     Indication: PRODUCT USED FOR UNKNOWN INDICATION
     Dosage: 1200 INTERNATIONAL UNIT
     Route: 058
     Dates: start: 20190711, end: 20190722
  7. ZOPICLON [Concomitant]
     Active Substance: ZOPICLONE
     Indication: PRODUCT USED FOR UNKNOWN INDICATION
     Dosage: 7.5 MILLIGRAM
     Route: 048
     Dates: start: 20190909
  8. IBUPROFEN. [Concomitant]
     Active Substance: IBUPROFEN
     Indication: PRODUCT USED FOR UNKNOWN INDICATION
     Dosage: 1800 MG, QD
     Route: 048
     Dates: start: 20180630
  9. ACTRAPID [Concomitant]
     Active Substance: INSULIN HUMAN
     Indication: PRODUCT USED FOR UNKNOWN INDICATION
     Dosage: 2200 INTERNATIONAL UNIT
     Route: 058
     Dates: start: 20190723
  10. INSULIN [Concomitant]
     Active Substance: INSULIN NOS
     Indication: PRODUCT USED FOR UNKNOWN INDICATION
     Dosage: UNK
     Route: 065
     Dates: start: 20190711, end: 20190722
  11. NIVOLUMAB [Suspect]
     Active Substance: NIVOLUMAB
     Indication: LUNG NEOPLASM MALIGNANT
     Dosage: 1 DF, Q2WK
     Route: 065
     Dates: start: 20180516, end: 20180727
  12. NIVOLUMAB [Suspect]
     Active Substance: NIVOLUMAB
     Indication: MALIGNANT MELANOMA
     Dosage: 1 DF, Q2WK
     Route: 065
     Dates: start: 20180404, end: 20180516
  13. PANTOZOL [Concomitant]
     Active Substance: PANTOPRAZOLE SODIUM
     Indication: PROPHYLAXIS
     Dosage: 40 MILLIGRAM, QD
     Route: 048
     Dates: start: 20180630, end: 20181029
  14. ACETYLSALICYLIC ACID [Concomitant]
     Active Substance: ASPIRIN
     Indication: PRODUCT USED FOR UNKNOWN INDICATION
     Dosage: 100 MILLIGRAM
     Route: 048
     Dates: start: 20190711

REACTIONS (6)
  - Lymphadenitis [Recovered/Resolved]
  - Metastases to pancreas [Unknown]
  - Humerus fracture [Recovered/Resolved]
  - Gastritis [Recovered/Resolved]
  - Diabetes mellitus [Unknown]
  - Anaemia [Unknown]

NARRATIVE: CASE EVENT DATE: 20180628
